FAERS Safety Report 9023021 (Version 1)
Quarter: 2013Q1

REPORT INFORMATION
  Report Type: Spontaneous
  Country: US (occurrence: US)
  Receive Date: 20130120
  Receipt Date: 20130120
  Transmission Date: 20140127
  Serious: No
  Sender: FDA-Public Use
  Company Number: US-ALLERGAN-1215705US

PATIENT
  Age: 62 Year
  Sex: Female

DRUGS (10)
  1. BOTOX COSMETIC [Suspect]
     Indication: MUSCULOSKELETAL STIFFNESS
     Dosage: 40 UNITS, SINGLE
     Route: 030
     Dates: start: 20121025, end: 20121025
  2. BOTOX COSMETIC [Suspect]
     Dosage: 40 UNITS, SINGLE
     Route: 030
     Dates: start: 20121011, end: 20121011
  3. BOTOX COSMETIC [Suspect]
     Dosage: 40 UNITS, SINGLE
     Route: 030
     Dates: start: 20121003, end: 20121003
  4. VITAMIN D /00107901/ [Concomitant]
     Indication: SUPPLEMENTATION THERAPY
     Dosage: UNK
     Route: 048
  5. MULTIVITAMIN                       /00097801/ [Concomitant]
     Indication: SUPPLEMENTATION THERAPY
     Dosage: UNK
     Route: 048
  6. WATER PILL NOS [Concomitant]
     Indication: PRODUCT USED FOR UNKNOWN INDICATION
     Dosage: UNK
     Route: 048
  7. ASA [Concomitant]
     Indication: PRODUCT USED FOR UNKNOWN INDICATION
     Dosage: 81 MG, UNK
     Route: 048
  8. TEAR-GEL [Concomitant]
     Indication: DRY EYE
     Dosage: UNK
     Route: 047
  9. EXEMESTANE [Concomitant]
     Indication: PRODUCT USED FOR UNKNOWN INDICATION
     Dosage: UNK
  10. LIPITOR [Concomitant]
     Indication: BLOOD CHOLESTEROL INCREASED
     Dosage: UNK
     Route: 048

REACTIONS (4)
  - Dyspnoea [Recovering/Resolving]
  - Dysphagia [Recovering/Resolving]
  - Muscular weakness [Recovering/Resolving]
  - Drug ineffective [Unknown]
